FAERS Safety Report 15650759 (Version 2)
Quarter: 2024Q3

REPORT INFORMATION
  Report Type: Spontaneous
  Country: ES (occurrence: ES)
  Receive Date: 20181123
  Receipt Date: 20240801
  Transmission Date: 20241017
  Serious: Yes (Other)
  Sender: AUROBINDO
  Company Number: ES-AUROBINDO-AUR-APL-2018-056472

PATIENT
  Age: 19 Year
  Sex: Female

DRUGS (5)
  1. DEXTROMETHORPHAN [Interacting]
     Active Substance: DEXTROMETHORPHAN
     Indication: Product used for unknown indication
     Dosage: UNK
     Route: 048
     Dates: start: 201811, end: 20181104
  2. QUETIAPINE [Interacting]
     Active Substance: QUETIAPINE
     Indication: Borderline personality disorder
     Dosage: 100 MILLIGRAM, DAILY,0-0-0-1, 1 EVERY 24 HOURS
     Route: 048
  3. CYMBALTA [Interacting]
     Active Substance: DULOXETINE HYDROCHLORIDE
     Indication: Borderline personality disorder
     Dosage: 30 MILLIGRAM, DAILY,1 EVERY 24 HOURS
     Route: 048
  4. CYMBALTA [Interacting]
     Active Substance: DULOXETINE HYDROCHLORIDE
     Dosage: 60 MILLIGRAM, DAILY, 1 EVERY 24 HOURS
     Route: 048
  5. LEVOTHYROXINE SODIUM [Concomitant]
     Active Substance: LEVOTHYROXINE SODIUM
     Indication: Hypothyroidism
     Dosage: 100 MILLIGRAM, DAILY,1-0-0-0, 1 EVERY 24 HOURS
     Route: 048

REACTIONS (5)
  - Nausea [Unknown]
  - Palpitations [Unknown]
  - Chest pain [Recovered/Resolved]
  - Tremor [Recovering/Resolving]
  - Dizziness [Recovering/Resolving]

NARRATIVE: CASE EVENT DATE: 20181103
